FAERS Safety Report 8379444-1 (Version None)
Quarter: 2012Q2

REPORT INFORMATION
  Report Type: 
  Country: None (occurrence: None)
  Receive Date: 20120523
  Receipt Date: 20120514
  Transmission Date: 20120825
  Serious: Yes (Hospitalization, Other)
  Sender: FDA-Public Use
  Company Number: US-JNJFOC-20120503165

PATIENT
  Sex: Female
  Weight: 122.47 kg

DRUGS (5)
  1. FENTANYL-100 [Suspect]
     Indication: PRODUCT USED FOR UNKNOWN INDICATION
     Route: 062
     Dates: start: 20060101
  2. DURAGESIC-100 [Suspect]
     Route: 062
     Dates: start: 20120301
  3. DURAGESIC-100 [Suspect]
     Indication: BONE DISORDER
     Route: 062
     Dates: start: 20120101, end: 20120201
  4. DURAGESIC-100 [Suspect]
     Route: 062
     Dates: start: 20111201, end: 20120101
  5. DURAGESIC-100 [Suspect]
     Route: 062
     Dates: start: 20120201, end: 20120301

REACTIONS (8)
  - PAIN [None]
  - HIP ARTHROPLASTY [None]
  - PNEUMONIA [None]
  - PRODUCT QUALITY ISSUE [None]
  - HAEMORRHAGE [None]
  - BONE DISORDER [None]
  - PLATELET COUNT DECREASED [None]
  - WRONG TECHNIQUE IN DRUG USAGE PROCESS [None]
